FAERS Safety Report 5108151-3 (Version None)
Quarter: 2006Q3

REPORT INFORMATION
  Report Type: 
  Country: None (occurrence: None)
  Receive Date: 20060919
  Receipt Date: 20060914
  Transmission Date: 20061208
  Serious: Yes (Other)
  Sender: FDA-Public Use
  Company Number: 2006JP003238

PATIENT
  Age: 78 Year
  Sex: Male

DRUGS (5)
  1. CEFAZOLIN [Suspect]
     Indication: PNEUMONIA
     Route: 042
     Dates: start: 20060907, end: 20060907
  2. MEROPEN [Suspect]
     Route: 042
     Dates: start: 20060907, end: 20060907
  3. DEPAKENE [Concomitant]
     Route: 048
  4. WARFARIN SODIUM [Concomitant]
     Route: 048
  5. LEVOFLOXACIN [Concomitant]
     Route: 048
     Dates: start: 20060905, end: 20060907

REACTIONS (1)
  - HEPATIC FUNCTION ABNORMAL [None]
